FAERS Safety Report 26138563 (Version 1)
Quarter: 2025Q4

REPORT INFORMATION
  Report Type: Spontaneous
  Country: EU (occurrence: EU)
  Receive Date: 20251210
  Receipt Date: 20251210
  Transmission Date: 20260118
  Serious: Yes (Other)
  Sender: AMGEN
  Company Number: EU-AMGEN-DEUSP2025242291

PATIENT
  Age: 14 Year
  Sex: Female

DRUGS (1)
  1. PROCYSBI [Suspect]
     Active Substance: CYSTEAMINE BITARTRATE
     Indication: Cystinosis
     Dosage: UNK
     Route: 065

REACTIONS (3)
  - Renal failure [Recovered/Resolved]
  - Normal newborn [Unknown]
  - Maternal exposure during pregnancy [Recovered/Resolved]
